FAERS Safety Report 4423754-7 (Version None)
Quarter: 2004Q3

REPORT INFORMATION
  Report Type: 
  Country: None (occurrence: None)
  Receive Date: 20040805
  Receipt Date: 20040720
  Transmission Date: 20050211
  Serious: Yes (Death, Hospitalization)
  Sender: FDA-Public Use
  Company Number: DSA_24705_2004

PATIENT
  Age: 30 Year
  Sex: Male

DRUGS (3)
  1. ATIVAN [Suspect]
     Dosage: DF DAILY
  2. MIRTAZAPINE [Suspect]
     Dosage: DF DAILY
  3. ZOPICLONE [Suspect]
     Dosage: 7.5 MG ONCE

REACTIONS (3)
  - INJURY ASPHYXIATION [None]
  - INTENTIONAL SELF-INJURY [None]
  - OVERDOSE [None]
